FAERS Safety Report 9204971 (Version 1)
Quarter: 2013Q2

REPORT INFORMATION
  Report Type: Report from Study
  Country: US (occurrence: US)
  Receive Date: 20130402
  Receipt Date: 20130402
  Transmission Date: 20140414
  Serious: Yes (Other)
  Sender: FDA-Public Use
  Company Number: US-ROCHE-1205865

PATIENT
  Age: 66 Year
  Sex: Male
  Weight: 96.25 kg

DRUGS (7)
  1. ACTEMRA [Suspect]
     Indication: RHEUMATOID ARTHRITIS
     Dosage: 760-800 MG
     Route: 042
     Dates: start: 201211
  2. ACTEMRA [Suspect]
     Dosage: 760-800 MG
     Route: 042
     Dates: start: 201212
  3. ACTEMRA [Suspect]
     Dosage: 760-800 MG
     Route: 042
     Dates: start: 201301
  4. ACTEMRA [Suspect]
     Route: 042
     Dates: start: 20130211, end: 20130311
  5. RITUXAN [Suspect]
     Indication: RHEUMATOID ARTHRITIS
     Route: 042
     Dates: start: 2012
  6. PLAQUENIL [Concomitant]
     Indication: RHEUMATOID ARTHRITIS
     Route: 065
     Dates: start: 20130321
  7. CEPHALEXIN [Concomitant]
     Indication: CELLULITIS
     Route: 065
     Dates: start: 20130321

REACTIONS (3)
  - Pneumonia [Not Recovered/Not Resolved]
  - Haemoptysis [Not Recovered/Not Resolved]
  - Cellulitis [Not Recovered/Not Resolved]
